FAERS Safety Report 19783588 (Version 1)
Quarter: 2021Q3

REPORT INFORMATION
  Report Type: Spontaneous
  Country: US (occurrence: US)
  Receive Date: 20210903
  Receipt Date: 20210903
  Transmission Date: 20211014
  Serious: No
  Sender: FDA-Public Use
  Company Number: US-TEVA-2021-US-1941445

PATIENT
  Age: 45 Year
  Sex: Female
  Weight: 69.85 kg

DRUGS (1)
  1. MUPIROCIN. [Suspect]
     Active Substance: MUPIROCIN
     Route: 065

REACTIONS (7)
  - Crying [Unknown]
  - Pruritus [Unknown]
  - Insomnia [Unknown]
  - Urticaria [Unknown]
  - Immune system disorder [Unknown]
  - Scab [Unknown]
  - Drug ineffective [Unknown]
